FAERS Safety Report 13478194 (Version 2)
Quarter: 2017Q3

REPORT INFORMATION
  Report Type: Report from Study
  Country: US (occurrence: US)
  Receive Date: 20170424
  Receipt Date: 20170728
  Transmission Date: 20171127
  Serious: No
  Sender: FDA-Public Use
  Company Number: US-AMGEN-USASL2017011112

PATIENT
  Age: 73 Year
  Sex: Female

DRUGS (5)
  1. ASA [Concomitant]
     Active Substance: ASPIRIN
  2. ZETIA [Concomitant]
     Active Substance: EZETIMIBE
  3. TENORMIN [Concomitant]
     Active Substance: ATENOLOL
  4. REPATHA [Suspect]
     Active Substance: EVOLOCUMAB
     Indication: PERIPHERAL VASCULAR DISORDER
     Dosage: 140 MG, UNK
     Route: 058
     Dates: start: 20160630, end: 201608
  5. CARDIZEM [Concomitant]
     Active Substance: DILTIAZEM HYDROCHLORIDE

REACTIONS (3)
  - Viral infection [Unknown]
  - Unevaluable event [Unknown]
  - Upper respiratory tract infection [Recovered/Resolved]

NARRATIVE: CASE EVENT DATE: 20161231
